APPROVED DRUG PRODUCT: MESALAMINE
Active Ingredient: MESALAMINE
Strength: 375MG
Dosage Form/Route: CAPSULE, EXTENDED RELEASE;ORAL
Application: A214477 | Product #001 | TE Code: AB
Applicant: AUROBINDO PHARMA LTD
Approved: Mar 31, 2023 | RLD: No | RS: No | Type: RX